FAERS Safety Report 8603825-1 (Version None)
Quarter: 2012Q3

REPORT INFORMATION
  Report Type: 
  Country: None (occurrence: None)
  Receive Date: 20120818
  Receipt Date: 20120730
  Transmission Date: 20120928
  Serious: No
  Sender: FDA-Public Use
  Company Number: PHEH2012US016103

PATIENT
  Sex: Male

DRUGS (1)
  1. TASIGNA [Suspect]
     Indication: CHRONIC LYMPHOCYTIC LEUKAEMIA
     Dosage: 300 MG, BID
     Route: 048
     Dates: start: 20120623

REACTIONS (1)
  - LABELLED DRUG-FOOD INTERACTION MEDICATION ERROR [None]
